FAERS Safety Report 9800180 (Version 3)
Quarter: 2014Q3

REPORT INFORMATION
  Report Type: Spontaneous
  Country: US (occurrence: US)
  Receive Date: 20140106
  Receipt Date: 20140911
  Transmission Date: 20150326
  Serious: Yes (Hospitalization, Disabling, Other)
  Sender: FDA-Public Use
  Company Number: US-009507513-1401USA001472

PATIENT
  Sex: Female

DRUGS (1)
  1. NUVARING [Suspect]
     Active Substance: ETHINYL ESTRADIOL\ETONOGESTREL
     Route: 067

REACTIONS (7)
  - Deep vein thrombosis [Unknown]
  - Abortion spontaneous [Recovered/Resolved]
  - Deep vein thrombosis [Unknown]
  - Drug ineffective [Unknown]
  - Obesity surgery [Unknown]
  - Pulmonary embolism [Unknown]
  - Maternal exposure before pregnancy [Recovered/Resolved]

NARRATIVE: CASE EVENT DATE: 20120829
